FAERS Safety Report 7503062-8 (Version None)
Quarter: 2011Q2

REPORT INFORMATION
  Report Type: 
  Country: None (occurrence: None)
  Receive Date: 20110518
  Receipt Date: 20110514
  Transmission Date: 20111010
  Serious: Yes (Life-Threatening, Hospitalization, Other)
  Sender: FDA-Public Use
  Company Number: 20096121

PATIENT
  Sex: Female

DRUGS (1)
  1. LIORESAL [Suspect]
     Indication: MUSCLE SPASTICITY
     Dosage: 199.9 MCG, DAILY, INTRATHECAL
     Route: 037

REACTIONS (17)
  - DEVICE FAILURE [None]
  - PRURITUS [None]
  - DEVICE INEFFECTIVE [None]
  - PAIN IN EXTREMITY [None]
  - DEVICE BREAKAGE [None]
  - DEVICE CONNECTION ISSUE [None]
  - DEVICE DAMAGE [None]
  - MUSCLE SPASTICITY [None]
  - AGITATION [None]
  - OVERDOSE [None]
  - INCORRECT DOSE ADMINISTERED BY DEVICE [None]
  - DRUG WITHDRAWAL SYNDROME [None]
  - CONDITION AGGRAVATED [None]
  - HYPERSOMNIA [None]
  - DEVICE MALFUNCTION [None]
  - DEVICE DISLOCATION [None]
  - DISCOMFORT [None]
